FAERS Safety Report 4951419-1 (Version None)
Quarter: 2006Q1

REPORT INFORMATION
  Report Type: 
  Country: None (occurrence: None)
  Receive Date: 20060317
  Receipt Date: 20060301
  Transmission Date: 20060701
  Serious: Yes (Other)
  Sender: FDA-Public Use
  Company Number: US200601001127

PATIENT
  Sex: Female

DRUGS (3)
  1. FORTEO [Suspect]
     Dates: start: 20050401, end: 20051201
  2. FORTEO [Suspect]
     Dates: start: 20060101
  3. FORTEO PEN (150MCG/ML) (FORTEO PEN 250MCG/ML (3ML) PEN, DISPOSABLE [Concomitant]

REACTIONS (3)
  - ARTHROPATHY [None]
  - CHONDROMA [None]
  - CHONDROSARCOMA [None]
